FAERS Safety Report 4993435-X (Version None)
Quarter: 2006Q2

REPORT INFORMATION
  Report Type: 
  Country: None (occurrence: None)
  Receive Date: 20060505
  Receipt Date: 20060502
  Transmission Date: 20061013
  Serious: Yes (Life-Threatening)
  Sender: FDA-Public Use
  Company Number: 2006CG00775

PATIENT
  Age: 69 Year
  Sex: Male
  Weight: 80 kg

DRUGS (6)
  1. NEXIUM [Suspect]
     Route: 048
  2. CORDARONE [Interacting]
     Dosage: 1 GRAM WEEKLY
     Route: 048
     Dates: end: 20050827
  3. VFEND [Interacting]
     Route: 048
     Dates: start: 20050520, end: 20050908
  4. FUROSEMIDE [Concomitant]
     Route: 048
  5. FLUOXETINE CHLORHYDRATE [Concomitant]
     Route: 048
  6. ALPRAZOLAM [Concomitant]
     Route: 048

REACTIONS (4)
  - DRUG INTERACTION [None]
  - ELECTROCARDIOGRAM QT PROLONGED [None]
  - MALAISE [None]
  - TORSADE DE POINTES [None]
